FAERS Safety Report 23857296 (Version 1)
Quarter: 2024Q2

REPORT INFORMATION
  Report Type: Spontaneous
  Country: US (occurrence: US)
  Receive Date: 20240515
  Receipt Date: 20240515
  Transmission Date: 20240715
  Serious: Yes (Hospitalization)
  Sender: FDA-Public Use
  Company Number: US-LEADINGPHARMA-US-2024LEALIT00140

PATIENT
  Age: 3 Decade
  Sex: Male

DRUGS (2)
  1. LORAZEPAM [Suspect]
     Active Substance: LORAZEPAM
     Indication: Catatonia
     Route: 065
  2. BUPROPION [Concomitant]
     Active Substance: BUPROPION
     Indication: Catatonia
     Route: 065

REACTIONS (4)
  - Catatonia [Recovering/Resolving]
  - Condition aggravated [Recovering/Resolving]
  - Rebound effect [Unknown]
  - Product use in unapproved indication [Unknown]
